FAERS Safety Report 7508690-1 (Version None)
Quarter: 2011Q2

REPORT INFORMATION
  Report Type: 
  Country: None (occurrence: None)
  Receive Date: 20110527
  Receipt Date: 20100719
  Transmission Date: 20111010
  Serious: Yes (Other)
  Sender: FDA-Public Use
  Company Number: A0871161A

PATIENT
  Age: 67 Year
  Sex: Female

DRUGS (9)
  1. FUROSEMIDE [Concomitant]
  2. PLAVIX [Concomitant]
  3. PROTONIX [Concomitant]
  4. LORAZEPAM [Concomitant]
  5. SPIRIVA [Concomitant]
  6. POTASSIUM CHLORIDE [Concomitant]
  7. VENTOLIN [Suspect]
     Indication: ASTHMA
     Dosage: 1PUFF AS REQUIRED
     Route: 055
     Dates: start: 20100701
  8. SIMVASTATIN [Concomitant]
  9. CEFDINIR [Concomitant]

REACTIONS (2)
  - ANGIOEDEMA [None]
  - URTICARIA [None]
